FAERS Safety Report 24116057 (Version 1)
Quarter: 2024Q3

REPORT INFORMATION
  Report Type: Other
  Country: CH (occurrence: CH)
  Receive Date: 20240722
  Receipt Date: 20240722
  Transmission Date: 20241016
  Serious: Yes (Hospitalization)
  Sender: BIONPHARMA
  Company Number: CH-Bion-013463

PATIENT
  Age: 11 Year
  Sex: Male

DRUGS (3)
  1. VALPROIC ACID [Suspect]
     Active Substance: VALPROIC ACID
     Indication: Agitation
     Dosage: BOLUS
     Dates: start: 20230305
  2. VALPROIC ACID [Suspect]
     Active Substance: VALPROIC ACID
     Indication: Agitation
     Dosage: BOLUS
     Route: 048
     Dates: start: 20230308
  3. VALPROIC ACID [Suspect]
     Active Substance: VALPROIC ACID
     Indication: Aggression
     Dosage: BOLUS
     Dates: start: 20230305

REACTIONS (2)
  - Sedation [Unknown]
  - Off label use [Unknown]
